FAERS Safety Report 12520199 (Version 3)
Quarter: 2017Q2

REPORT INFORMATION
  Report Type: Spontaneous
  Country: US (occurrence: US)
  Receive Date: 20160630
  Receipt Date: 20170420
  Transmission Date: 20170830
  Serious: Yes (Other)
  Sender: FDA-Public Use
  Company Number: US-BAYER-2016-033731

PATIENT
  Age: 51 Year
  Sex: Female
  Weight: 78.01 kg

DRUGS (3)
  1. INDOMETHACIN. [Concomitant]
     Active Substance: INDOMETHACIN
     Dosage: UNK UNK, BID
  2. COLCHICINE. [Concomitant]
     Active Substance: COLCHICINE
     Dosage: ALMOST THREE WEEKS
  3. DR. SCHOLLS EXTRA THICK CALLUS REMOVERS [Suspect]
     Active Substance: SALICYLIC ACID
     Indication: HYPERKERATOSIS
     Dosage: USED ONLY ONE TIME TO THE LEFT GREAT TOE
     Route: 061
     Dates: start: 20150611, end: 20150611

REACTIONS (26)
  - Contusion [Recovering/Resolving]
  - Arthralgia [None]
  - Application site pain [None]
  - Tendon injury [Recovered/Resolved]
  - Peripheral swelling [Recovered/Resolved]
  - Pain in extremity [Not Recovered/Not Resolved]
  - Gait disturbance [None]
  - Erythema [None]
  - Drug ineffective [None]
  - Synovitis [None]
  - Application site pain [None]
  - Skin discolouration [None]
  - Pain [None]
  - Joint effusion [None]
  - Pain in extremity [None]
  - Localised infection [None]
  - Inflammation [None]
  - Product adhesion issue [None]
  - Rash papular [Recovering/Resolving]
  - Joint swelling [Not Recovered/Not Resolved]
  - Pain [None]
  - Application site discomfort [None]
  - Pain [None]
  - Swelling [None]
  - Tenderness [Recovering/Resolving]
  - Pain in extremity [None]

NARRATIVE: CASE EVENT DATE: 20150611
